FAERS Safety Report 14108436 (Version 1)
Quarter: 2017Q4

REPORT INFORMATION
  Report Type: Spontaneous
  Country: US (occurrence: US)
  Receive Date: 20171019
  Receipt Date: 20171019
  Transmission Date: 20180321
  Serious: Yes (Other)
  Sender: FDA-Public Use
  Company Number: US-TEVA-817427USA

PATIENT
  Sex: Female

DRUGS (1)
  1. EZETIMIBE. [Suspect]
     Active Substance: EZETIMIBE
     Route: 065

REACTIONS (3)
  - Blood test abnormal [Recovered/Resolved]
  - Cardiac disorder [Not Recovered/Not Resolved]
  - Myocardial infarction [Unknown]
